FAERS Safety Report 5421765-6 (Version None)
Quarter: 2007Q3

REPORT INFORMATION
  Report Type: 
  Country: None (occurrence: None)
  Receive Date: 20070720
  Receipt Date: 20060803
  Transmission Date: 20080115
  Serious: Yes (Hospitalization)
  Sender: FDA-Public Use
  Company Number: PHEH2006US09915

PATIENT
  Age: 4 Year
  Sex: Female
  Weight: 24 kg

DRUGS (3)
  1. TRILEPTAL [Suspect]
     Indication: CONVULSION
     Dosage: 180 MG, Q12H, ORAL
     Route: 048
     Dates: start: 20060701
  2. PHENOBARBITAL TAB [Concomitant]
  3. VASOTEC [Concomitant]

REACTIONS (5)
  - BLOOD AMYLASE INCREASED [None]
  - LIPASE INCREASED [None]
  - PANCREATITIS [None]
  - PYREXIA [None]
  - SEPTIC SHOCK [None]
